FAERS Safety Report 16804230 (Version 1)
Quarter: 2019Q3

REPORT INFORMATION
  Report Type: Spontaneous
  Country: IN (occurrence: IN)
  Receive Date: 20190913
  Receipt Date: 20190913
  Transmission Date: 20191005
  Serious: Yes (Hospitalization)
  Sender: FDA-Public Use
  Company Number: IN-MYLANLABS-2019M1085745

PATIENT
  Age: 18 Year
  Sex: Female

DRUGS (3)
  1. PACLITAXEL. [Suspect]
     Active Substance: PACLITAXEL
     Indication: TERATOMA
     Dosage: RECEIVED FIVE CYCLES
     Route: 065
  2. BLEOMYCIN [Suspect]
     Active Substance: BLEOMYCIN SULFATE
     Indication: TERATOMA
     Dosage: RECEIVED FIVE CYCLES
     Route: 065
  3. ETOPOSIDE. [Suspect]
     Active Substance: ETOPOSIDE
     Indication: TERATOMA
     Dosage: RECEIVED FIVE CYCLES
     Route: 065

REACTIONS (2)
  - Condition aggravated [Recovered/Resolved]
  - Teratoma [Recovered/Resolved]

NARRATIVE: CASE EVENT DATE: 2011
